FAERS Safety Report 7693485-9 (Version None)
Quarter: 2011Q3

REPORT INFORMATION
  Report Type: 
  Country: None (occurrence: None)
  Receive Date: 20110819
  Receipt Date: 20110819
  Transmission Date: 20111222
  Serious: Yes (Other)
  Sender: FDA-Public Use
  Company Number: None

PATIENT
  Sex: Female

DRUGS (1)
  1. AMPYRA [Suspect]
     Indication: MULTIPLE SCLEROSIS
     Dosage: 10MG
     Route: 048

REACTIONS (3)
  - URINARY TRACT INFECTION [None]
  - UPPER LIMB FRACTURE [None]
  - INCISION SITE INFECTION [None]
